FAERS Safety Report 25353789 (Version 1)
Quarter: 2025Q2

REPORT INFORMATION
  Report Type: Spontaneous
  Country: US (occurrence: None)
  Receive Date: 20250523
  Receipt Date: 20250523
  Transmission Date: 20250716
  Serious: No
  Sender: FDA-CTU
  Company Number: None

PATIENT
  Sex: Female

DRUGS (2)
  1. ZEPBOUND [Suspect]
     Active Substance: TIRZEPATIDE
     Indication: Weight decreased
  2. ZEPBOUND [Suspect]
     Active Substance: TIRZEPATIDE
     Indication: Osteoarthritis

REACTIONS (4)
  - Vomiting [None]
  - Dyspepsia [None]
  - Dyspepsia [None]
  - Drug ineffective [None]
